FAERS Safety Report 13046191 (Version 2)
Quarter: 2017Q1

REPORT INFORMATION
  Report Type: Spontaneous
  Country: US (occurrence: US)
  Receive Date: 20161220
  Receipt Date: 20170310
  Transmission Date: 20170428
  Serious: No
  Sender: FDA-Public Use
  Company Number: US-PFIZER INC-2016578940

PATIENT
  Age: 64 Year
  Sex: Male

DRUGS (1)
  1. SUTENT [Suspect]
     Active Substance: SUNITINIB MALATE
     Indication: COLON CANCER
     Dosage: 50 MG (1 CAPSULE), CYCLIC (MOUTH DAILY FOR 4 WEEKS ON THEN 2 WEEKS OFF)
     Route: 048
     Dates: start: 20160222

REACTIONS (5)
  - Blister [Recovering/Resolving]
  - Diarrhoea [Recovering/Resolving]
  - Skin disorder [Unknown]
  - Pain of skin [Unknown]
  - Skin sensitisation [Unknown]

NARRATIVE: CASE EVENT DATE: 2016
